FAERS Safety Report 8392071-5 (Version None)
Quarter: 2012Q2

REPORT INFORMATION
  Report Type: 
  Country: None (occurrence: None)
  Receive Date: 20120529
  Receipt Date: 20120517
  Transmission Date: 20120825
  Serious: Yes (Hospitalization)
  Sender: FDA-Public Use
  Company Number: NL-SANOFI-AVENTIS-2012SA035704

PATIENT
  Age: 84 Year
  Sex: Male
  Weight: 70 kg

DRUGS (2)
  1. ACETYLSALICYLIC ACID SRT [Concomitant]
     Route: 048
     Dates: start: 19990101
  2. ANANDRON [Suspect]
     Indication: PALLIATIVE CARE
     Route: 048
     Dates: start: 20120216, end: 20120511

REACTIONS (2)
  - INTERSTITIAL LUNG DISEASE [None]
  - DECREASED APPETITE [None]
